FAERS Safety Report 18533575 (Version 6)
Quarter: 2021Q2

REPORT INFORMATION
  Report Type: Report from Study
  Country: JP (occurrence: JP)
  Receive Date: 20201123
  Receipt Date: 20210514
  Transmission Date: 20210717
  Serious: Yes (Hospitalization)
  Sender: FDA-Public Use
  Company Number: JP-EISAI MEDICAL RESEARCH-EC-2020-084129

PATIENT
  Age: 64 Year
  Sex: Female
  Weight: 46.8 kg

DRUGS (12)
  1. AMLODIPINE [Concomitant]
     Active Substance: AMLODIPINE BESYLATE
     Dates: start: 202004, end: 20201110
  2. MAGMITT [Concomitant]
     Active Substance: MAGNESIUM OXIDE
     Dates: start: 202004
  3. EDIROL [Concomitant]
     Active Substance: ELDECALCITOL
     Dates: start: 202004, end: 20201110
  4. MASHININ?GAN [Concomitant]
     Active Substance: HERBALS
     Dates: start: 202004, end: 20201110
  5. PEMBROLIZUMAB. [Suspect]
     Active Substance: PEMBROLIZUMAB
     Indication: ENDOMETRIAL CANCER
     Route: 041
     Dates: start: 20201027, end: 20201027
  6. CINAL [Concomitant]
     Dates: start: 202004, end: 20201107
  7. LENVATINIB [Suspect]
     Active Substance: LENVATINIB
     Indication: ENDOMETRIAL CANCER
     Route: 048
     Dates: start: 20201027
  8. KAMI?SHOYO?SAN [Concomitant]
     Active Substance: HERBALS
     Dates: start: 202004, end: 20201029
  9. BERIZYM [Concomitant]
     Active Substance: CELLULASE\DIASTASE\LIPASE
     Dates: start: 202004, end: 20201110
  10. ATENOLOL. [Concomitant]
     Active Substance: ATENOLOL
     Dates: start: 202004, end: 20201110
  11. ATORVASTATIN [Concomitant]
     Active Substance: ATORVASTATIN
     Dates: start: 202004, end: 20201110
  12. CALONAL [Concomitant]
     Active Substance: ACETAMINOPHEN
     Dates: start: 20201006, end: 20201111

REACTIONS (1)
  - Pyrexia [Recovered/Resolved]

NARRATIVE: CASE EVENT DATE: 20201030
